FAERS Safety Report 25214764 (Version 1)
Quarter: 2025Q2

REPORT INFORMATION
  Report Type: Spontaneous
  Country: US (occurrence: None)
  Receive Date: 20250418
  Receipt Date: 20250418
  Transmission Date: 20250716
  Serious: Yes (Disabling)
  Sender: FDA-CTU
  Company Number: None

PATIENT
  Age: 50 Year
  Sex: Female
  Weight: 74.25 kg

DRUGS (4)
  1. BELSOMRA [Suspect]
     Active Substance: SUVOREXANT
     Indication: Insomnia
     Dosage: 1 TABLET AT BEDTIME ORAL
     Route: 048
     Dates: start: 20250307, end: 20250403
  2. VITAMIN B COMPLEX [Concomitant]
     Active Substance: CYANOCOBALAMIN\DEXPANTHENOL\NIACINAMIDE\PYRIDOXINE HYDROCHLORIDE\RIBOFLAVIN 5^-PHOSPHATE SODIUM\THIA
  3. MAGNESIUM [Concomitant]
     Active Substance: MAGNESIUM
  4. CHOLINE [Concomitant]
     Active Substance: CHOLINE

REACTIONS (4)
  - Palpitations [None]
  - Cough [None]
  - Dizziness [None]
  - Heart rate decreased [None]

NARRATIVE: CASE EVENT DATE: 20250316
